FAERS Safety Report 6941325-5 (Version None)
Quarter: 2010Q3

REPORT INFORMATION
  Report Type: 
  Country: None (occurrence: None)
  Receive Date: 20100824
  Receipt Date: 20100824
  Transmission Date: 20110219
  Serious: No
  Sender: FDA-Public Use
  Company Number: None

PATIENT
  Sex: Female
  Weight: 80.2867 kg

DRUGS (1)
  1. PRINIVIL [Suspect]
     Indication: HYPERTENSION
     Dosage: 20 MG DAILY ORAL
     Route: 048
     Dates: start: 20091006, end: 20100806

REACTIONS (1)
  - COUGH [None]
